FAERS Safety Report 8313781-1 (Version None)
Quarter: 2012Q2

REPORT INFORMATION
  Report Type: 
  Country: None (occurrence: None)
  Receive Date: 20120426
  Receipt Date: 20120423
  Transmission Date: 20120825
  Serious: Yes (Death, Other)
  Sender: FDA-Public Use
  Company Number: PL-JNJFOC-20120408721

PATIENT

DRUGS (1)
  1. DOXORUBICIN HCL [Suspect]
     Indication: LYMPHOMA
     Route: 042

REACTIONS (4)
  - CARDIAC DISORDER [None]
  - ACUTE CORONARY SYNDROME [None]
  - CARDIOTOXICITY [None]
  - LYMPHOMA [None]
